FAERS Safety Report 16861019 (Version 6)
Quarter: 2020Q4

REPORT INFORMATION
  Report Type: Spontaneous
  Country: BR (occurrence: BR)
  Receive Date: 20190927
  Receipt Date: 20201120
  Transmission Date: 20210113
  Serious: Yes (Disabling, Other)
  Sender: FDA-Public Use
  Company Number: BR-SA-2019SA263604

PATIENT

DRUGS (10)
  1. FABRAZYME [Suspect]
     Active Substance: AGALSIDASE BETA
     Indication: FABRY^S DISEASE
     Dosage: 1 DF, BIW (1 AMPOULE OF 35 ML)
     Route: 041
     Dates: start: 2013, end: 201912
  2. FABRAZYME [Suspect]
     Active Substance: AGALSIDASE BETA
     Dosage: DOSE: 1 AND 2 , QOW
     Route: 041
     Dates: end: 20200701
  3. CARVEDILOL. [Concomitant]
     Active Substance: CARVEDILOL
     Indication: BLOOD PRESSURE ABNORMAL
  4. FABRAZYME [Suspect]
     Active Substance: AGALSIDASE BETA
     Dosage: UNK, BIW
     Route: 042
  5. CALCITRIOL. [Concomitant]
     Active Substance: CALCITRIOL
     Dosage: UNK UNK, UNK
  6. RENAGEL [SEVELAMER CARBONATE] [Concomitant]
     Dosage: UNK
  7. LOSARTAN. [Concomitant]
     Active Substance: LOSARTAN
     Dosage: UNK UNK, UNK
  8. AAS [Concomitant]
     Active Substance: ASPIRIN
     Dosage: UNK
  9. NORIPURUM [Concomitant]
     Active Substance: IRON POLYMALTOSE
     Indication: MINERAL SUPPLEMENTATION
     Dosage: UNK
  10. CARVEDILOL. [Concomitant]
     Active Substance: CARVEDILOL
     Indication: CARDIAC DISORDER
     Dosage: UNK

REACTIONS (18)
  - Urinary retention [Unknown]
  - Blood potassium decreased [Unknown]
  - White blood cell count increased [Unknown]
  - Blood glucose abnormal [Unknown]
  - Cardiovascular disorder [Recovering/Resolving]
  - Blood thyroid stimulating hormone increased [Unknown]
  - Anaemia [Recovered/Resolved]
  - Vascular occlusion [Unknown]
  - Limb operation [Recovering/Resolving]
  - Wheelchair user [Unknown]
  - Skin discolouration [Unknown]
  - Tendonitis [Unknown]
  - Cerebral disorder [Unknown]
  - Drug hypersensitivity [Unknown]
  - Limb injury [Unknown]
  - Product dose omission issue [Unknown]
  - Amputee [Unknown]
  - Contusion [Recovering/Resolving]

NARRATIVE: CASE EVENT DATE: 2019
